FAERS Safety Report 16111948 (Version 2)
Quarter: 2019Q2

REPORT INFORMATION
  Report Type: Spontaneous
  Country: DE (occurrence: DE)
  Receive Date: 20190325
  Receipt Date: 20190509
  Transmission Date: 20190711
  Serious: Yes (Hospitalization, Other)
  Sender: FDA-Public Use
  Company Number: DE-BRISTOL-MYERS SQUIBB COMPANY-BMS-2019-027348

PATIENT
  Age: 54 Year
  Sex: Male

DRUGS (3)
  1. NIVOLUMAB [Suspect]
     Active Substance: NIVOLUMAB
     Indication: METASTATIC MALIGNANT MELANOMA
     Dosage: UNK, COMBINATION THERAPY
     Route: 065
     Dates: start: 201707
  2. IPILIMUMAB [Suspect]
     Active Substance: IPILIMUMAB
     Indication: METASTATIC MALIGNANT MELANOMA
     Route: 065
  3. NIVOLUMAB [Suspect]
     Active Substance: NIVOLUMAB
     Indication: PRODUCT USED FOR UNKNOWN INDICATION
     Dosage: UNK, MONOTHERAPY
     Route: 065
     Dates: start: 201712

REACTIONS (8)
  - Hypophysitis [Unknown]
  - Diarrhoea [Unknown]
  - Metastases to abdominal cavity [Unknown]
  - Liver function test increased [Recovered/Resolved]
  - Amylase increased [Unknown]
  - Arthralgia [Unknown]
  - Lipase increased [Unknown]
  - Thyroiditis [Unknown]

NARRATIVE: CASE EVENT DATE: 201710
